FAERS Safety Report 22115054 (Version 1)
Quarter: 2023Q1

REPORT INFORMATION
  Report Type: Spontaneous
  Country: KR (occurrence: KR)
  Receive Date: 20230320
  Receipt Date: 20230320
  Transmission Date: 20230417
  Serious: Yes (Hospitalization)
  Sender: FDA-Public Use
  Company Number: KR-MYLANLABS-2023M1027678

PATIENT
  Age: 62 Year
  Sex: Female

DRUGS (2)
  1. CELEBREX [Suspect]
     Active Substance: CELECOXIB
     Indication: Lung disorder
     Dosage: 100 MILLIGRAM, QD
     Route: 065
     Dates: start: 20210616
  2. ACECLOFENAC [Suspect]
     Active Substance: ACECLOFENAC
     Indication: Lung disorder
     Dosage: 100 MILLIGRAM, QD
     Route: 065
     Dates: start: 20210616

REACTIONS (2)
  - Pruritus [Recovered/Resolved]
  - Off label use [Unknown]

NARRATIVE: CASE EVENT DATE: 20210616
